FAERS Safety Report 17659299 (Version 1)
Quarter: 2020Q2

REPORT INFORMATION
  Report Type: Spontaneous
  Country: US (occurrence: US)
  Receive Date: 20200413
  Receipt Date: 20200413
  Transmission Date: 20200713
  Serious: No
  Sender: FDA-Public Use
  Company Number: US-BION-008360

PATIENT
  Age: 42 Year
  Sex: Female
  Weight: 92.08 kg

DRUGS (4)
  1. LORTAB [Concomitant]
     Active Substance: ACETAMINOPHEN\HYDROCODONE BITARTRATE
  2. MORPHINE [Concomitant]
     Active Substance: MORPHINE
  3. HYDROCODONE [Concomitant]
     Active Substance: HYDROCODONE
  4. ALEVE [Suspect]
     Active Substance: NAPROXEN SODIUM
     Indication: PRODUCT USED FOR UNKNOWN INDICATION
     Route: 048
     Dates: start: 201307

REACTIONS (1)
  - Incorrect product administration duration [Not Recovered/Not Resolved]
